FAERS Safety Report 17894225 (Version 1)
Quarter: 2020Q2

REPORT INFORMATION
  Report Type: Spontaneous
  Country: BR (occurrence: BR)
  Receive Date: 20200615
  Receipt Date: 20200615
  Transmission Date: 20200714
  Serious: Yes (Other)
  Sender: FDA-Public Use
  Company Number: BR-GLAXOSMITHKLINE-BR2020AMR096061

PATIENT
  Age: 49 Year
  Sex: Male

DRUGS (4)
  1. AEROLIN [Suspect]
     Active Substance: ALBUTEROL
     Indication: ASTHMA
  2. AEROLIN [Suspect]
     Active Substance: ALBUTEROL
     Indication: COVID-19
  3. AEROLIN [Suspect]
     Active Substance: ALBUTEROL
     Indication: COVID-19
  4. AEROLIN [Suspect]
     Active Substance: ALBUTEROL
     Indication: ASTHMA
     Dosage: UNK

REACTIONS (5)
  - Prescription drug used without a prescription [Unknown]
  - Dyspnoea [Unknown]
  - COVID-19 [Unknown]
  - Product use in unapproved indication [Unknown]
  - Incorrect dose administered [Unknown]
